FAERS Safety Report 9176484 (Version 2)
Quarter: 2013Q2

REPORT INFORMATION
  Report Type: Spontaneous
  Country: US (occurrence: None)
  Receive Date: 20120531
  Receipt Date: 20130130
  Transmission Date: 20140414
  Serious: Yes (Other)
  Sender: FDA-Public Use
  Company Number: US201201007488

PATIENT
  Sex: Male

DRUGS (10)
  1. BYETTA (EXENATIDE) PEN, DISPOSABLE [Suspect]
     Indication: TYPE 2 DIABETES MELLITUS
     Route: 058
  2. LANTUS (INSULIN GLARGINE) [Concomitant]
  3. NOVOLIN N (INSULIN HUMAN INJECTION,ISOPHANE) [Concomitant]
  4. AMARYL (GLIMEPIRIDE) [Concomitant]
  5. PROTONIX (PANTOPRAZOLE SODIUM SESQUIHYDRATE) [Concomitant]
  6. MAXZIDE (HYDROCHLOROTHIAZIDE, TRIAMTERENE) [Concomitant]
  7. DOXAZOSIN MESYLATE (DOXAZOSIN MESILATE) [Concomitant]
  8. ALLOPURINOL (ALLOPURINOL) [Concomitant]
  9. ENLAPRIL (ENLAPRIL) [Concomitant]
  10. ACTOS (PIOGLITAZONE HYDROCHLORIDE) [Concomitant]

REACTIONS (1)
  - Renal failure [None]
